FAERS Safety Report 20542459 (Version 1)
Quarter: 2022Q1

REPORT INFORMATION
  Report Type: Spontaneous
  Country: HU (occurrence: HU)
  Receive Date: 20220302
  Receipt Date: 20220302
  Transmission Date: 20220423
  Serious: Yes (Hospitalization, Other)
  Sender: FDA-Public Use
  Company Number: HU-ASTELLAS-2022US007552

PATIENT
  Age: 45 Year
  Sex: Male

DRUGS (2)
  1. GILTERITINIB [Suspect]
     Active Substance: GILTERITINIB
     Indication: Acute myeloid leukaemia
     Dosage: 120 MG, DAILY
     Route: 065
     Dates: start: 20210123, end: 20210515
  2. GILTERITINIB [Suspect]
     Active Substance: GILTERITINIB
     Indication: FLT3 gene mutation
     Dosage: 120 MG, DAILY
     Route: 065
     Dates: start: 20210526, end: 20210714

REACTIONS (6)
  - Cytopenia [Unknown]
  - Febrile neutropenia [Unknown]
  - Myelosuppression [Unknown]
  - Granulocytosis [Unknown]
  - Pyrexia [Not Recovered/Not Resolved]
  - Minimal residual disease [Unknown]

NARRATIVE: CASE EVENT DATE: 20210204
